FAERS Safety Report 5289830-4 (Version None)
Quarter: 2007Q2

REPORT INFORMATION
  Report Type: 
  Country: None (occurrence: None)
  Receive Date: 20070406
  Receipt Date: 20070327
  Transmission Date: 20071010
  Serious: Yes (Disabling)
  Sender: FDA-Public Use
  Company Number: AU-SANOFI-SYNTHELABO-A01200703400

PATIENT
  Age: 40 Year
  Sex: Female

DRUGS (1)
  1. STILNOX [Suspect]
     Indication: DRUG USE FOR UNKNOWN INDICATION
     Route: 065
     Dates: start: 20061201, end: 20061201

REACTIONS (3)
  - FALL [None]
  - GANGRENE [None]
  - LOSS OF CONSCIOUSNESS [None]
